FAERS Safety Report 11360417 (Version 1)
Quarter: 2015Q3

REPORT INFORMATION
  Report Type: Report from Study
  Country: US (occurrence: US)
  Receive Date: 20150810
  Receipt Date: 20150810
  Transmission Date: 20151125
  Serious: No
  Sender: FDA-Public Use
  Company Number: PHEH2015US004132

PATIENT
  Age: 38 Year
  Sex: Female

DRUGS (4)
  1. EXTAVIA [Suspect]
     Active Substance: INTERFERON BETA-1B
     Indication: MULTIPLE SCLEROSIS
     Dosage: (0.125 MG) 0.5 ML, QOD
     Route: 058
  2. EXTAVIA [Suspect]
     Active Substance: INTERFERON BETA-1B
     Dosage: (0.25 MG) 1 ML, QOD
     Route: 058
  3. EXTAVIA [Suspect]
     Active Substance: INTERFERON BETA-1B
     Dosage: (0.0625 MG) 0.25 ML, QOD
     Route: 058
     Dates: start: 20150225
  4. EXTAVIA [Suspect]
     Active Substance: INTERFERON BETA-1B
     Dosage: (0.1875 MG) 0.75 ML, QOD
     Route: 058

REACTIONS (2)
  - Headache [Unknown]
  - Memory impairment [Unknown]

NARRATIVE: CASE EVENT DATE: 20150225
